FAERS Safety Report 5090882-5 (Version None)
Quarter: 2006Q3

REPORT INFORMATION
  Report Type: 
  Country: None (occurrence: None)
  Receive Date: 20060823
  Receipt Date: 20060811
  Transmission Date: 20061208
  Serious: Yes (Life-Threatening, Hospitalization, Other)
  Sender: FDA-Public Use
  Company Number: 2006014158

PATIENT
  Age: 47 Year
  Sex: Male
  Weight: 91.6 kg

DRUGS (7)
  1. SUTENT [Suspect]
     Indication: RENAL CELL CARCINOMA STAGE UNSPECIFIED
     Dosage: 50 MG (50 MG, DAILY INTERVAL:  EVERYDAY), ORAL
     Route: 048
     Dates: start: 20060113, end: 20060125
  2. GABAPENTIN [Concomitant]
  3. ORAMORPH SR [Concomitant]
  4. PROZAC [Concomitant]
  5. ZOPICLONE (ZOPICLONE) [Concomitant]
  6. MST (MORPHINE SULFATE) [Concomitant]
  7. PROPRANOLOL [Concomitant]

REACTIONS (39)
  - ABDOMINAL PAIN [None]
  - ABDOMINAL PAIN LOWER [None]
  - BLOOD BICARBONATE DECREASED [None]
  - BLOOD CALCIUM DECREASED [None]
  - BLOOD CHLORIDE DECREASED [None]
  - BLOOD CREATININE INCREASED [None]
  - BLOOD PH INCREASED [None]
  - BLOOD POTASSIUM DECREASED [None]
  - BLOOD PRESSURE FLUCTUATION [None]
  - BLOOD PRESSURE SYSTOLIC INCREASED [None]
  - BODY TEMPERATURE INCREASED [None]
  - C-REACTIVE PROTEIN INCREASED [None]
  - CARDIAC ARREST [None]
  - CARDIAC ENZYMES INCREASED [None]
  - COMA [None]
  - DIARRHOEA [None]
  - HAEMATEMESIS [None]
  - HEPATOMEGALY [None]
  - HYPOTENSION [None]
  - INTRACRANIAL PRESSURE INCREASED [None]
  - ISCHAEMIC HEPATITIS [None]
  - MALAISE [None]
  - NAUSEA [None]
  - PARTIAL SEIZURES [None]
  - PCO2 DECREASED [None]
  - PERICARDIAL EFFUSION [None]
  - PLATELET COUNT DECREASED [None]
  - PO2 INCREASED [None]
  - PROTEIN TOTAL DECREASED [None]
  - PULSE ABSENT [None]
  - PUPILS UNEQUAL [None]
  - RESPIRATORY RATE INCREASED [None]
  - RIGHT VENTRICULAR FAILURE [None]
  - SHOCK [None]
  - SYNCOPE [None]
  - TENDERNESS [None]
  - TORSADE DE POINTES [None]
  - VOMITING [None]
  - WHITE BLOOD CELL COUNT INCREASED [None]
